FAERS Safety Report 4415947-X (Version None)
Quarter: 2004Q3

REPORT INFORMATION
  Report Type: 
  Country: None (occurrence: None)
  Receive Date: 20040805
  Receipt Date: 20040805
  Transmission Date: 20050211
  Serious: Yes (Hospitalization)
  Sender: FDA-Public Use
  Company Number: None

PATIENT
  Age: 50 Year
  Sex: Male
  Weight: 88.4514 kg

DRUGS (6)
  1. CRESTOR [Suspect]
     Indication: HYPERLIPIDAEMIA
     Dosage: 10 MG  DAILY  ORAL
     Route: 048
     Dates: start: 20040628, end: 20040728
  2. WELLBUTRIN [Concomitant]
  3. SEROQUEL [Concomitant]
  4. LISINOPRIL [Concomitant]
  5. CLINDAMYCIN [Concomitant]
  6. XANAX [Concomitant]

REACTIONS (4)
  - DEEP VEIN THROMBOSIS [None]
  - DYSPNOEA [None]
  - FEELING ABNORMAL [None]
  - PULMONARY EMBOLISM [None]
